FAERS Safety Report 25233993 (Version 2)
Quarter: 2025Q2

REPORT INFORMATION
  Report Type: Report from Study
  Country: CH (occurrence: CH)
  Receive Date: 20250424
  Receipt Date: 20250427
  Transmission Date: 20250717
  Serious: Yes (Other)
  Sender: ABBVIE
  Company Number: CH-ABBVIE-6245713

PATIENT
  Age: 70 Year
  Sex: Male

DRUGS (2)
  1. CARBIDOPA\LEVODOPA [Suspect]
     Active Substance: CARBIDOPA\LEVODOPA
     Indication: Parkinson^s disease
     Route: 050
     Dates: start: 20250327
  2. CARBIDOPA\LEVODOPA [Suspect]
     Active Substance: CARBIDOPA\LEVODOPA
     Route: 050
     Dates: start: 20220919

REACTIONS (6)
  - Pyloric stenosis [Not Recovered/Not Resolved]
  - Dyskinesia [Recovering/Resolving]
  - Ulcer [Not Recovered/Not Resolved]
  - Akinesia [Recovering/Resolving]
  - Device kink [Recovered/Resolved]
  - Device dislocation [Recovered/Resolved]
